FAERS Safety Report 6159247-9 (Version None)
Quarter: 2009Q2

REPORT INFORMATION
  Report Type: 
  Country: None (occurrence: None)
  Receive Date: 20090417
  Receipt Date: 20090415
  Transmission Date: 20091009
  Serious: Yes (Other)
  Sender: FDA-Public Use
  Company Number: JP-B.I. PHARMACEUTICALS,INC./RIDGEFIELD-2009-BP-02372NB

PATIENT
  Age: 68 Year
  Sex: Male

DRUGS (3)
  1. MICARDIS [Suspect]
     Indication: HYPERTENSION
     Dosage: 40MG
     Route: 048
  2. CARDENALIN [Suspect]
     Dosage: 2MG
     Route: 048
  3. ATELEC [Concomitant]
     Dosage: 10MG
     Route: 048

REACTIONS (1)
  - INTERSTITIAL LUNG DISEASE [None]
